FAERS Safety Report 5593062-X (Version None)
Quarter: 2008Q1

REPORT INFORMATION
  Report Type: 
  Country: None (occurrence: None)
  Receive Date: 20080114
  Receipt Date: 20080108
  Transmission Date: 20080703
  Serious: Yes (Life-Threatening, Hospitalization)
  Sender: FDA-Public Use
  Company Number: 2008-169987-NL

PATIENT
  Sex: Male

DRUGS (1)
  1. REMERON [Suspect]
     Dosage: 15 MG

REACTIONS (2)
  - COMA [None]
  - SUICIDE ATTEMPT [None]
